FAERS Safety Report 8332301-9 (Version None)
Quarter: 2012Q2

REPORT INFORMATION
  Report Type: 
  Country: None (occurrence: None)
  Receive Date: 20120503
  Receipt Date: 20120412
  Transmission Date: 20120825
  Serious: No
  Sender: FDA-Public Use
  Company Number: US-BIOGENIDEC-2012BI012729

PATIENT
  Age: 34 Year
  Sex: Female

DRUGS (2)
  1. AVONEX [Suspect]
     Route: 030
     Dates: start: 20120321
  2. AVONEX [Suspect]
     Indication: MULTIPLE SCLEROSIS
     Route: 030
     Dates: start: 20030320

REACTIONS (5)
  - INFLUENZA LIKE ILLNESS [None]
  - INJECTION SITE URTICARIA [None]
  - ABDOMINAL HERNIA [None]
  - INJECTION SITE PAIN [None]
  - HEADACHE [None]
